FAERS Safety Report 9390960 (Version 2)
Quarter: 2013Q3

REPORT INFORMATION
  Report Type: Spontaneous
  Country: US (occurrence: US)
  Receive Date: 20130709
  Receipt Date: 20130819
  Transmission Date: 20140515
  Serious: No
  Sender: FDA-Public Use
  Company Number: US-PFIZER INC-2013198855

PATIENT
  Age: 58 Year
  Sex: Male
  Weight: 63.49 kg

DRUGS (2)
  1. LIPITOR [Suspect]
     Indication: BLOOD CHOLESTEROL INCREASED
     Dosage: 20 MG, DAILY
     Dates: start: 2005
  2. CALAN SR [Suspect]
     Indication: HYPERTENSION
     Dosage: 240 MG, DAILY

REACTIONS (1)
  - Oropharyngeal pain [Not Recovered/Not Resolved]
